FAERS Safety Report 24990199 (Version 1)
Quarter: 2025Q1

REPORT INFORMATION
  Report Type: Report from Study
  Country: NL (occurrence: NL)
  Receive Date: 20250220
  Receipt Date: 20250220
  Transmission Date: 20250409
  Serious: Yes (Hospitalization, Other)
  Sender: AMGEN
  Company Number: NL-UCBSA-2025000038

PATIENT
  Age: 82 Year
  Sex: Female

DRUGS (1)
  1. EVENITY [Suspect]
     Active Substance: ROMOSOZUMAB-AQQG
     Indication: Osteoporosis
     Dosage: 210 MILLIGRAM, EV 4 WEEKS
     Route: 065
     Dates: start: 20240412, end: 20250114

REACTIONS (5)
  - Squamous cell carcinoma [Recovering/Resolving]
  - Tumour excision [Recovering/Resolving]
  - Osteonecrosis [Unknown]
  - Hypocalcaemia [Unknown]
  - Dysphagia [Not Recovered/Not Resolved]

NARRATIVE: CASE EVENT DATE: 20250114
